FAERS Safety Report 5387158-5 (Version None)
Quarter: 2007Q3

REPORT INFORMATION
  Report Type: 
  Country: None (occurrence: None)
  Receive Date: 20070711
  Receipt Date: 20070626
  Transmission Date: 20080115
  Serious: Yes (Other)
  Sender: FDA-Public Use
  Company Number: T200700740

PATIENT
  Age: 18 Year
  Sex: Male

DRUGS (1)
  1. METHYLIN [Suspect]
     Indication: ATTENTION DEFICIT/HYPERACTIVITY DISORDER
     Dosage: 7.5 MG, BID

REACTIONS (3)
  - AGITATION [None]
  - ROAD TRAFFIC ACCIDENT [None]
  - TRAUMATIC BRAIN INJURY [None]
